FAERS Safety Report 5813168-7 (Version None)
Quarter: 2008Q3

REPORT INFORMATION
  Report Type: 
  Country: None (occurrence: None)
  Receive Date: 20080717
  Receipt Date: 20080313
  Transmission Date: 20090109
  Serious: No
  Sender: FDA-Public Use
  Company Number: A0715117A

PATIENT
  Age: 39 Year
  Sex: Female

DRUGS (2)
  1. NICORETTE [Suspect]
     Dates: start: 20080228
  2. PERCOCET [Concomitant]

REACTIONS (5)
  - HYPERTROPHY OF TONGUE PAPILLAE [None]
  - INTENTIONAL DRUG MISUSE [None]
  - ORAL DISCOMFORT [None]
  - ORAL PAIN [None]
  - STOMATITIS [None]
